FAERS Safety Report 19309907 (Version 1)
Quarter: 2021Q2

REPORT INFORMATION
  Report Type: Spontaneous
  Country: IT (occurrence: IT)
  Receive Date: 20210526
  Receipt Date: 20210526
  Transmission Date: 20210717
  Serious: Yes (Hospitalization, Other)
  Sender: FDA-Public Use
  Company Number: IT-OXFORD PHARMACEUTICALS, LLC-2111997

PATIENT
  Age: 82 Year
  Sex: Female

DRUGS (4)
  1. MANNITOL. [Suspect]
     Active Substance: MANNITOL
  2. LACOSAMIDE. [Suspect]
     Active Substance: LACOSAMIDE
  3. LEVETIRACETAM. [Suspect]
     Active Substance: LEVETIRACETAM
     Indication: STATUS EPILEPTICUS
     Route: 042
  4. PHENYTOIN. [Suspect]
     Active Substance: PHENYTOIN

REACTIONS (1)
  - Epilepsy [Recovered/Resolved]
